FAERS Safety Report 13777652 (Version 2)
Quarter: 2017Q3

REPORT INFORMATION
  Report Type: Spontaneous
  Country: GB (occurrence: GB)
  Receive Date: 20170721
  Receipt Date: 20170801
  Transmission Date: 20171127
  Serious: Yes (Hospitalization)
  Sender: FDA-Public Use
  Company Number: GB-TORRENT-00015443

PATIENT
  Age: 79 Year
  Sex: Male

DRUGS (15)
  1. DULOXETINE. [Suspect]
     Active Substance: DULOXETINE
  2. BISOPROLOL FUMARATE. [Concomitant]
     Active Substance: BISOPROLOL FUMARATE
  3. METFORMIN [Suspect]
     Active Substance: METFORMIN HYDROCHLORIDE
  4. LAXIDO [Concomitant]
     Active Substance: POLYETHYLENE GLYCOL 3350\POTASSIUM CHLORIDE\SODIUM BICARBONATE\SODIUM CHLORIDE
  5. PARACETAMOL [Concomitant]
     Active Substance: ACETAMINOPHEN
  6. DICLOFENAC [Suspect]
     Active Substance: DICLOFENAC
  7. TRIMETHOPRIM. [Suspect]
     Active Substance: TRIMETHOPRIM
  8. ATORVASTATIN [Concomitant]
     Active Substance: ATORVASTATIN
  9. LANSOPRAZOLE. [Concomitant]
     Active Substance: LANSOPRAZOLE
  10. VENTOLIN [Concomitant]
     Active Substance: ALBUTEROL SULFATE
  11. ZOPICLONE [Concomitant]
     Active Substance: ZOPICLONE
  12. CODEINE HYDROCHLORIDE [Concomitant]
     Active Substance: CODEINE HYDROCHLORIDE
  13. NAPROXEN. [Suspect]
     Active Substance: NAPROXEN
  14. BISACODYL. [Concomitant]
     Active Substance: BISACODYL
  15. FERROUS FUMARATE [Concomitant]
     Active Substance: FERROUS FUMARATE

REACTIONS (1)
  - Acute kidney injury [Recovering/Resolving]
